FAERS Safety Report 9352066 (Version 1)
Quarter: 2013Q2

REPORT INFORMATION
  Report Type: Spontaneous
  Country: IN (occurrence: None)
  Receive Date: 20130612
  Receipt Date: 20130612
  Transmission Date: 20140414
  Serious: Yes (Other)
  Sender: FDA-Public Use
  Company Number: 2013P1007034

PATIENT
  Sex: 0

DRUGS (1)
  1. MISOPROSTOL [Suspect]
     Indication: LABOUR INDUCTION
     Route: 067

REACTIONS (5)
  - Meconium stain [None]
  - Uterine hypertonus [None]
  - Off label use [None]
  - Exposure during pregnancy [None]
  - Incorrect dose administered [None]
